FAERS Safety Report 16974731 (Version 1)
Quarter: 2019Q4

REPORT INFORMATION
  Report Type: Report from Study
  Country: None (occurrence: FR)
  Receive Date: 20191030
  Receipt Date: 20191030
  Transmission Date: 20200122
  Serious: Yes (Other)
  Sender: FDA-Public Use
  Company Number: FR-ABBVIE-19K-056-2977950-00

PATIENT

DRUGS (2)
  1. VENCLYXTO [Suspect]
     Active Substance: VENETOCLAX
     Indication: CHRONIC LYMPHOCYTIC LEUKAEMIA
     Route: 048
  2. VENCLYXTO [Suspect]
     Active Substance: VENETOCLAX
     Dosage: MODIFIED
     Route: 048

REACTIONS (11)
  - Blood lactate dehydrogenase increased [Recovered/Resolved]
  - Thrombocytopenia [Not Recovered/Not Resolved]
  - Tumour lysis syndrome [Recovered/Resolved]
  - Diarrhoea [Not Recovered/Not Resolved]
  - Mucormycosis [Recovered/Resolved]
  - Aspergillus infection [Not Recovered/Not Resolved]
  - Anaemia [Recovered/Resolved]
  - Cataract [Not Recovered/Not Resolved]
  - Hypogammaglobulinaemia [Not Recovered/Not Resolved]
  - Skin lesion [Not Recovered/Not Resolved]
  - Neutropenia [Recovered/Resolved]

NARRATIVE: CASE EVENT DATE: 20190428
